FAERS Safety Report 15554113 (Version 5)
Quarter: 2019Q1

REPORT INFORMATION
  Report Type: Report from Study
  Country: None (occurrence: ES)
  Receive Date: 20181026
  Receipt Date: 20190111
  Transmission Date: 20190417
  Serious: Yes (Hospitalization)
  Sender: FDA-Public Use
  Company Number: ES-ABBVIE-18S-144-2526321-00

PATIENT
  Age: 80 Year
  Sex: Female
  Weight: 65 kg

DRUGS (2)
  1. DUODOPA [Suspect]
     Active Substance: CARBIDOPA\LEVODOPA
     Indication: PARKINSON^S DISEASE
     Dosage: CD +0.5ML/H; MD +1ML
     Route: 050
     Dates: start: 20181018, end: 20181023
  2. DUODOPA [Suspect]
     Active Substance: CARBIDOPA\LEVODOPA
     Route: 050
     Dates: start: 20181025, end: 201812

REACTIONS (15)
  - Pain [Recovered/Resolved]
  - Illusion [Recovered/Resolved]
  - Pneumoperitoneum [Recovered/Resolved]
  - Headache [Recovered/Resolved]
  - Dizziness [Recovered/Resolved]
  - Restlessness [Recovered/Resolved]
  - Somnolence [Unknown]
  - Parkinson^s disease [Recovered/Resolved]
  - Hypotension [Recovered/Resolved]
  - Disorientation [Unknown]
  - Gait disturbance [Not Recovered/Not Resolved]
  - Nausea [Not Recovered/Not Resolved]
  - Vision blurred [Recovered/Resolved]
  - Anxiety [Recovered/Resolved]
  - Stoma site discomfort [Not Recovered/Not Resolved]

NARRATIVE: CASE EVENT DATE: 201810
